FAERS Safety Report 18979209 (Version 1)
Quarter: 2021Q1

REPORT INFORMATION
  Report Type: Spontaneous
  Country: CM (occurrence: CM)
  Receive Date: 20210308
  Receipt Date: 20210308
  Transmission Date: 20210420
  Serious: Yes (Other)
  Sender: FDA-Public Use
  Company Number: CM-LUPIN PHARMACEUTICALS INC.-2021-02635

PATIENT
  Age: 48 Year
  Sex: Male

DRUGS (8)
  1. AZITHROMYCIN ANHYDROUS. [Suspect]
     Active Substance: AZITHROMYCIN ANHYDROUS
     Indication: COVID-19
     Dosage: 500 MILLIGRAM, QD
     Route: 048
     Dates: start: 202004
  2. AMOXICILLIN/CLAVULANIC ACID [Suspect]
     Active Substance: AMOXICILLIN\CLAVULANIC ACID
     Indication: COVID-19
     Dosage: 1 GRAM, TID
     Route: 042
     Dates: start: 202004
  3. GLUCOSE [Concomitant]
     Active Substance: DEXTROSE
     Indication: VEHICLE SOLUTION USE
     Dosage: UNK, (QUININE INJECTABLE IN 5% GLUCOSE 500CC)
     Route: 042
     Dates: start: 202004
  4. OMEPRAZOLE. [Suspect]
     Active Substance: OMEPRAZOLE
     Indication: COVID-19
     Dosage: 40 MILLIGRAM, QD
     Route: 042
     Dates: start: 202004
  5. QUININE [Suspect]
     Active Substance: QUININE
     Indication: COVID-19
     Dosage: 500 MILLIGRAM, FLOW RATE OF 42 DROPS/MINUTE; INJECTABLE IN 5% GLUCOSE 500CC
     Route: 042
     Dates: start: 202004
  6. ARTEMETHER/LUMEFANTRINE [Concomitant]
     Active Substance: ARTEMETHER\LUMEFANTRINE
     Indication: MALARIA
     Dosage: UNK
     Route: 048
     Dates: start: 202004
  7. BETAMETHASONE. [Suspect]
     Active Substance: BETAMETHASONE
     Indication: COVID-19
     Dosage: 4 MILLIGRAM, BID
     Route: 042
     Dates: start: 202004
  8. ARTEROLANE;PIPERAQUINE [Concomitant]
     Indication: MALARIA
     Dosage: 1 DOSAGE FORM, QD
     Route: 048
     Dates: start: 202004

REACTIONS (1)
  - Off label use [Unknown]
